FAERS Safety Report 12517502 (Version 1)
Quarter: 2016Q2

REPORT INFORMATION
  Report Type: Report from Study
  Country: IL (occurrence: IL)
  Receive Date: 20160630
  Receipt Date: 20160630
  Transmission Date: 20160815
  Serious: Yes (Life-Threatening, Hospitalization, Other)
  Sender: FDA-Public Use
  Company Number: IL-AMGEN-ISRSL2016082352

PATIENT
  Age: 62 Year
  Sex: Female

DRUGS (1)
  1. NPLATE [Suspect]
     Active Substance: ROMIPLOSTIM
     Indication: IMMUNE THROMBOCYTOPENIC PURPURA
     Dosage: 124 MUG, QWK
     Route: 058
     Dates: start: 20140319

REACTIONS (3)
  - Respiratory disorder [Unknown]
  - Diverticulitis [Not Recovered/Not Resolved]
  - Apnoea [Unknown]

NARRATIVE: CASE EVENT DATE: 201606
